FAERS Safety Report 6522870-3 (Version None)
Quarter: 2009Q4

REPORT INFORMATION
  Report Type: 
  Country: None (occurrence: None)
  Receive Date: 20091230
  Receipt Date: 20091223
  Transmission Date: 20100525
  Serious: Yes (Disabling)
  Sender: FDA-Public Use
  Company Number: DE-MYLANLABS-2009S1021657

PATIENT
  Age: 40 Year
  Sex: Female

DRUGS (1)
  1. SUMATRIPTAN [Suspect]
     Indication: MIGRAINE
     Route: 048
     Dates: start: 20060101, end: 20090101

REACTIONS (4)
  - DIPLOPIA [None]
  - EYE PAIN [None]
  - STRABISMUS [None]
  - VISION BLURRED [None]
